FAERS Safety Report 4834555-X (Version None)
Quarter: 2005Q4

REPORT INFORMATION
  Report Type: 
  Country: None (occurrence: None)
  Receive Date: 20051122
  Receipt Date: 20050311
  Transmission Date: 20060501
  Serious: No
  Sender: FDA-Public Use
  Company Number: US-BRISTOL-MYERS SQUIBB COMPANY-12894838

PATIENT
  Age: 66 Year
  Sex: Female
  Weight: 68 kg

DRUGS (3)
  1. PRAVACHOL [Suspect]
     Indication: BLOOD CHOLESTEROL INCREASED
     Route: 048
  2. PRANDIN [Concomitant]
  3. MULTI-VITAMIN [Concomitant]

REACTIONS (4)
  - FLATULENCE [None]
  - MUSCLE SPASMS [None]
  - STOMACH DISCOMFORT [None]
  - TINNITUS [None]
